FAERS Safety Report 7510700-2 (Version None)
Quarter: 2011Q2

REPORT INFORMATION
  Report Type: 
  Country: None (occurrence: None)
  Receive Date: 20110530
  Receipt Date: 20110516
  Transmission Date: 20111010
  Serious: Yes (Other)
  Sender: FDA-Public Use
  Company Number: PHHY2011BR42656

PATIENT
  Age: 59 Year
  Sex: Female
  Weight: 69 kg

DRUGS (1)
  1. GLEEVEC [Suspect]
     Indication: GASTROINTESTINAL STROMAL TUMOUR
     Dosage: 400 MG, A DAY
     Route: 048

REACTIONS (7)
  - JAUNDICE [None]
  - FAECES DISCOLOURED [None]
  - VOMITING [None]
  - EATING DISORDER [None]
  - ABDOMINAL PAIN [None]
  - NEOPLASM MALIGNANT [None]
  - PANCREATIC CARCINOMA [None]
